FAERS Safety Report 6321322-3 (Version None)
Quarter: 2009Q3

REPORT INFORMATION
  Report Type: 
  Country: None (occurrence: None)
  Receive Date: 20090822
  Receipt Date: 20090115
  Transmission Date: 20100115
  Serious: No
  Sender: FDA-Public Use
  Company Number: US-ABBOTT-09P-163-0498089-00

PATIENT
  Sex: Male

DRUGS (1)
  1. NIASPAN [Suspect]
     Indication: DRUG USE FOR UNKNOWN INDICATION
     Dosage: 500 MG NOW ON SIMCOR 500/20
     Dates: start: 20080801

REACTIONS (5)
  - ERYTHEMA [None]
  - FLUSHING [None]
  - HIGH DENSITY LIPOPROTEIN INCREASED [None]
  - PRURITUS [None]
  - SKIN BURNING SENSATION [None]
